FAERS Safety Report 5921951-2 (Version None)
Quarter: 2008Q4

REPORT INFORMATION
  Report Type: 
  Country: None (occurrence: None)
  Receive Date: 20081017
  Receipt Date: 20080605
  Transmission Date: 20090506
  Serious: Yes (Hospitalization)
  Sender: FDA-Public Use
  Company Number: AT-CELGENEUS-009-C5013-07110680

PATIENT
  Sex: Male
  Weight: 69.7 kg

DRUGS (6)
  1. REVLIMID [Suspect]
     Indication: MULTIPLE MYELOMA
     Route: 048
     Dates: start: 20070919, end: 20071113
  2. REVLIMID [Suspect]
     Route: 048
     Dates: start: 20071219
  3. MELPHALAN [Suspect]
     Indication: MULTIPLE MYELOMA
     Route: 048
     Dates: start: 20070919, end: 20071113
  4. MELPHALAN [Suspect]
     Route: 048
     Dates: start: 20071219
  5. PREDNISONE TAB [Suspect]
     Indication: MULTIPLE MYELOMA
     Route: 048
     Dates: start: 20070919, end: 20071113
  6. PREDNISONE TAB [Suspect]
     Route: 048
     Dates: start: 20071219

REACTIONS (1)
  - FEBRILE NEUTROPENIA [None]
